FAERS Safety Report 10842974 (Version 1)
Quarter: 2015Q1

REPORT INFORMATION
  Report Type: Report from Study
  Country: US (occurrence: US)
  Receive Date: 20150220
  Receipt Date: 20150220
  Transmission Date: 20150721
  Serious: Yes (Other)
  Sender: FDA-Public Use
  Company Number: US-ABBVIE-14P-163-1257690-00

PATIENT
  Age: 10 Year
  Sex: Female

DRUGS (8)
  1. HUMIRA [Suspect]
     Active Substance: ADALIMUMAB
     Indication: PRODUCT USED FOR UNKNOWN INDICATION
     Dates: start: 201311
  2. FLOVENT [Concomitant]
     Active Substance: FLUTICASONE PROPIONATE
     Indication: PRODUCT USED FOR UNKNOWN INDICATION
  3. ASMANEX [Concomitant]
     Active Substance: MOMETASONE FUROATE
     Indication: EOSINOPHILIC OESOPHAGITIS
  4. METHOTREXATE [Concomitant]
     Active Substance: METHOTREXATE
     Indication: OSTEOMYELITIS
     Route: 050
  5. OMEPRAZOLE. [Concomitant]
     Active Substance: OMEPRAZOLE
     Indication: GASTROOESOPHAGEAL REFLUX DISEASE
  6. ZYRTEC [Concomitant]
     Active Substance: CETIRIZINE HYDROCHLORIDE
     Indication: PRODUCT USED FOR UNKNOWN INDICATION
  7. SINGULAIR [Concomitant]
     Active Substance: MONTELUKAST SODIUM
     Indication: PRODUCT USED FOR UNKNOWN INDICATION
  8. FOLIC ACID. [Concomitant]
     Active Substance: FOLIC ACID
     Indication: VITAMIN SUPPLEMENTATION

REACTIONS (11)
  - Osteomyelitis [Not Recovered/Not Resolved]
  - Eyelid oedema [Unknown]
  - Vision blurred [Unknown]
  - Ocular discomfort [Unknown]
  - Pain in extremity [Unknown]
  - Pyrexia [Unknown]
  - Injection site urticaria [Unknown]
  - Off label use [Unknown]
  - Eyelid pain [Unknown]
  - Injection site rash [Unknown]
  - Injection site pain [Unknown]

NARRATIVE: CASE EVENT DATE: 201311
